FAERS Safety Report 21878571 (Version 1)
Quarter: 2023Q1

REPORT INFORMATION
  Report Type: Spontaneous
  Country: DE (occurrence: DE)
  Receive Date: 20230118
  Receipt Date: 20230118
  Transmission Date: 20230417
  Serious: Yes (Death, Other)
  Sender: FDA-Public Use
  Company Number: DE-AMGEN-DEUSP2023007038

PATIENT
  Sex: Female

DRUGS (1)
  1. LUMAKRAS [Suspect]
     Active Substance: SOTORASIB
     Indication: Non-small cell lung cancer
     Dosage: 860 MILLIGRAM
     Route: 065

REACTIONS (2)
  - Cerebrovascular accident [Fatal]
  - Off label use [Unknown]
